FAERS Safety Report 5167231-7 (Version None)
Quarter: 2006Q4

REPORT INFORMATION
  Report Type: 
  Country: None (occurrence: None)
  Receive Date: 20061130
  Receipt Date: 20061117
  Transmission Date: 20070319
  Serious: Yes (Other)
  Sender: FDA-Public Use
  Company Number: 2006142851

PATIENT

DRUGS (1)
  1. GEODON [Suspect]
     Dosage: 1200 MG, ONCE

REACTIONS (1)
  - INCORRECT DOSE ADMINISTERED [None]
